FAERS Safety Report 6595270-8 (Version None)
Quarter: 2010Q1

REPORT INFORMATION
  Report Type: 
  Country: None (occurrence: None)
  Receive Date: 20100212
  Receipt Date: 20100129
  Transmission Date: 20100710
  Serious: No
  Sender: FDA-Public Use
  Company Number: 20097762

PATIENT
  Age: 19 Year
  Sex: Male

DRUGS (1)
  1. LIORESAL [Suspect]
     Indication: MUSCLE SPASTICITY
     Dosage: 100, DAILY, INTRATHECAL
     Route: 037

REACTIONS (8)
  - DEVICE RELATED INFECTION [None]
  - DRUG WITHDRAWAL SYNDROME [None]
  - HYPERTONIA [None]
  - INCISION SITE COMPLICATION [None]
  - OPEN WOUND [None]
  - PRURITUS [None]
  - PYREXIA [None]
  - SWELLING [None]
